FAERS Safety Report 8366236-2 (Version None)
Quarter: 2012Q2

REPORT INFORMATION
  Report Type: 
  Country: None (occurrence: None)
  Receive Date: 20120517
  Receipt Date: 20120514
  Transmission Date: 20120825
  Serious: Yes (Other)
  Sender: FDA-Public Use
  Company Number: PHEH2012US010053

PATIENT
  Sex: Male

DRUGS (3)
  1. LISINOPRIL [Concomitant]
  2. PRAVASTATIN [Concomitant]
  3. METOPROLOL TARTRATE [Suspect]
     Dosage: UNK
     Dates: start: 20110701

REACTIONS (1)
  - MYOCARDIAL INFARCTION [None]
